FAERS Safety Report 10702022 (Version 2)
Quarter: 2015Q1

REPORT INFORMATION
  Report Type: Spontaneous
  Country: US (occurrence: US)
  Receive Date: 20150109
  Receipt Date: 20150109
  Transmission Date: 20150721
  Serious: No
  Sender: FDA-Public Use
  Company Number: US-CELGENEUS-163-10004-14051466

PATIENT
  Age: 25 Year
  Sex: Female
  Weight: 55.45 kg

DRUGS (8)
  1. TIZANIDINE (TIZANIDINE) [Concomitant]
     Active Substance: TIZANIDINE
     Route: 065
     Dates: start: 2012
  2. RELAFEN [Concomitant]
     Active Substance: NABUMETONE
     Route: 065
     Dates: start: 2012
  3. OMEPRAZOLE. [Concomitant]
     Active Substance: OMEPRAZOLE
     Route: 065
  4. OTEZLA [Suspect]
     Active Substance: APREMILAST
     Route: 048
     Dates: start: 2014, end: 20140701
  5. OTEZLA [Suspect]
     Active Substance: APREMILAST
     Indication: PSORIATIC ARTHROPATHY
     Route: 048
     Dates: start: 20140427, end: 20140529
  6. TRAMADOL [Concomitant]
     Active Substance: TRAMADOL
     Route: 065
  7. LYRICA [Concomitant]
     Active Substance: PREGABALIN
     Route: 065
     Dates: start: 2012
  8. METHOTREXATE WITH FOLINIC ACID [Concomitant]
     Route: 065
     Dates: start: 2012

REACTIONS (2)
  - Diarrhoea [Recovered/Resolved]
  - Migraine [Recovered/Resolved]

NARRATIVE: CASE EVENT DATE: 20140419
